FAERS Safety Report 23608416 (Version 1)
Quarter: 2024Q1

REPORT INFORMATION
  Report Type: Report from Study
  Country: EG (occurrence: EG)
  Receive Date: 20240307
  Receipt Date: 20240307
  Transmission Date: 20240410
  Serious: Yes (Death, Other)
  Sender: FDA-Public Use
  Company Number: EG-JNJFOC-20240273970

PATIENT

DRUGS (1)
  1. TECLISTAMAB [Suspect]
     Active Substance: TECLISTAMAB
     Indication: Plasma cell myeloma
     Route: 058

REACTIONS (19)
  - Neurotoxicity [Fatal]
  - Infection [Fatal]
  - Cytokine release syndrome [Fatal]
  - Sudden death [Fatal]
  - Cardiac failure [Fatal]
  - Myocarditis [Fatal]
  - Embolism [Fatal]
  - Shock [Fatal]
  - Coronary artery disease [Fatal]
  - Myocardial infarction [Fatal]
  - Tachyarrhythmia [Fatal]
  - Atrial fibrillation [Fatal]
  - Atrial flutter [Fatal]
  - Haemorrhage [Fatal]
  - Bradycardia [Fatal]
  - Pericardial effusion [Fatal]
  - Electrocardiogram QT prolonged [Unknown]
  - Disseminated intravascular coagulation [Unknown]
  - Hypotension [Unknown]
